FAERS Safety Report 18378043 (Version 1)
Quarter: 2020Q4

REPORT INFORMATION
  Report Type: Spontaneous
  Country: DK (occurrence: DK)
  Receive Date: 20201013
  Receipt Date: 20201013
  Transmission Date: 20210114
  Serious: Yes (Hospitalization)
  Sender: FDA-Public Use
  Company Number: DK-JNJFOC-20201006354

PATIENT
  Age: 68 Year
  Sex: Female
  Weight: 113 kg

DRUGS (7)
  1. COZAAR COMP FORTE [Concomitant]
     Active Substance: HYDROCHLOROTHIAZIDE\LOSARTAN POTASSIUM
     Indication: HYPERTENSION
     Dosage: STRENGTH: 100+25 MG.
     Route: 065
     Dates: start: 20090904
  2. ZESSLY [Suspect]
     Active Substance: INFLIXIMAB
     Indication: COLITIS ULCERATIVE
     Dosage: STRENGTH: 100 MG
     Route: 042
     Dates: start: 20191111, end: 20191121
  3. AMLODIPIN ^ACTAVIS^ [Concomitant]
     Active Substance: AMLODIPINE BESYLATE
     Indication: HYPERTENSION
     Dosage: STRENGTH: 10 MG.
     Route: 048
     Dates: start: 20181025
  4. PARACETAMOL [Concomitant]
     Active Substance: ACETAMINOPHEN
     Indication: PAIN
     Dosage: STRENGTH: 500 MG.; AS REQUIRED
     Route: 048
     Dates: start: 20100915
  5. ENTOCORT [Concomitant]
     Active Substance: BUDESONIDE
     Indication: COLITIS ULCERATIVE
     Dosage: STRENGTH: 2 MG.
     Route: 054
     Dates: start: 20191106, end: 20191124
  6. CALCIUM OG D-VITAMIN [Concomitant]
     Indication: MINERAL SUPPLEMENTATION
     Dosage: STRENGTH: UNKNOWN.
     Route: 048
     Dates: start: 20160131
  7. INFLIXIMAB, RECOMBINANT [Suspect]
     Active Substance: INFLIXIMAB
     Indication: COLITIS ULCERATIVE
     Route: 042

REACTIONS (7)
  - Discomfort [Recovered/Resolved]
  - Chest discomfort [Recovered/Resolved]
  - Flushing [Recovered/Resolved]
  - Chills [Recovered/Resolved]
  - Oropharyngeal discomfort [Recovered/Resolved]
  - Pyrexia [Recovered/Resolved]
  - Nausea [Recovered/Resolved]

NARRATIVE: CASE EVENT DATE: 20191121
